FAERS Safety Report 11758675 (Version 6)
Quarter: 2016Q4

REPORT INFORMATION
  Report Type: Report from Study
  Country: US (occurrence: US)
  Receive Date: 20151120
  Receipt Date: 20161006
  Transmission Date: 20170206
  Serious: Yes (Hospitalization)
  Sender: FDA-Public Use
  Company Number: US-SA-2015SA171717

PATIENT
  Age: 59 Year
  Sex: Female

DRUGS (1)
  1. LEMTRADA [Suspect]
     Active Substance: ALEMTUZUMAB
     Indication: MULTIPLE SCLEROSIS
     Route: 041
     Dates: start: 20151012, end: 20151016

REACTIONS (21)
  - Urticaria [Not Recovered/Not Resolved]
  - Fungal skin infection [Unknown]
  - Fatigue [Not Recovered/Not Resolved]
  - Dry skin [Not Recovered/Not Resolved]
  - Dizziness [Not Recovered/Not Resolved]
  - Neutropenia [Unknown]
  - Rash [Unknown]
  - Rash pruritic [Not Recovered/Not Resolved]
  - Vertigo [Not Recovered/Not Resolved]
  - White blood cell count decreased [Not Recovered/Not Resolved]
  - Skin abrasion [Unknown]
  - Pain in extremity [Not Recovered/Not Resolved]
  - Memory impairment [Unknown]
  - Headache [Not Recovered/Not Resolved]
  - Urinary tract infection [Unknown]
  - Fall [Unknown]
  - Sinus disorder [Not Recovered/Not Resolved]
  - Nasal congestion [Not Recovered/Not Resolved]
  - Malaise [Not Recovered/Not Resolved]
  - Condition aggravated [Unknown]
  - Scratch [Recovering/Resolving]

NARRATIVE: CASE EVENT DATE: 2015
